FAERS Safety Report 5235199-0 (Version None)
Quarter: 2007Q1

REPORT INFORMATION
  Report Type: 
  Country: None (occurrence: None)
  Receive Date: 20070208
  Receipt Date: 20070208
  Transmission Date: 20070707
  Serious: Yes (Hospitalization)
  Sender: FDA-Public Use
  Company Number: None

PATIENT
  Age: 46 Year
  Sex: Male
  Weight: 121.3 kg

DRUGS (1)
  1. REMODULIN [Suspect]
     Indication: PULMONARY HYPERTENSION
     Dosage: 162 MG/KG/MIN CONTINUOUS IV
     Route: 042

REACTIONS (2)
  - BLOOD CULTURE POSITIVE [None]
  - PROTEUS INFECTION [None]
